FAERS Safety Report 13621692 (Version 1)
Quarter: 2017Q2

REPORT INFORMATION
  Report Type: Spontaneous
  Country: US (occurrence: US)
  Receive Date: 20170607
  Receipt Date: 20170607
  Transmission Date: 20170830
  Serious: No
  Sender: FDA-Public Use
  Company Number: US-ROCHE-1765174

PATIENT
  Sex: Female

DRUGS (5)
  1. CLONAZEPAM. [Concomitant]
     Active Substance: CLONAZEPAM
     Indication: ANXIETY
  2. WELLBUTRIN [Concomitant]
     Active Substance: BUPROPION HYDROCHLORIDE
  3. PREMARIN [Concomitant]
     Active Substance: ESTROGENS, CONJUGATED
  4. KLONOPIN [Suspect]
     Active Substance: CLONAZEPAM
     Indication: ANXIETY
     Route: 065
  5. RITALIN [Concomitant]
     Active Substance: METHYLPHENIDATE HYDROCHLORIDE

REACTIONS (2)
  - Drug ineffective [Unknown]
  - No adverse event [Unknown]
